FAERS Safety Report 5405988-8 (Version None)
Quarter: 2007Q3

REPORT INFORMATION
  Report Type: 
  Country: None (occurrence: None)
  Receive Date: 20070806
  Receipt Date: 20070725
  Transmission Date: 20080115
  Serious: Yes (Hospitalization)
  Sender: FDA-Public Use
  Company Number: US-AMGEN-STX233873

PATIENT
  Sex: Female

DRUGS (2)
  1. ENBREL [Suspect]
     Indication: RHEUMATOID ARTHRITIS
     Route: 058
     Dates: start: 20001201
  2. ENBREL [Suspect]
     Indication: PSORIASIS

REACTIONS (3)
  - CATHETER RELATED INFECTION [None]
  - DIALYSIS DEVICE INSERTION [None]
  - PNEUMONIA [None]
